FAERS Safety Report 12760363 (Version 1)
Quarter: 2016Q3

REPORT INFORMATION
  Report Type: Spontaneous
  Country: TW (occurrence: TW)
  Receive Date: 20160919
  Receipt Date: 20160919
  Transmission Date: 20161109
  Serious: Yes (Other)
  Sender: FDA-Public Use
  Company Number: TW-MYLANLABS-2016M1039787

PATIENT

DRUGS (1)
  1. CLOZAPINE. [Suspect]
     Active Substance: CLOZAPINE
     Indication: SCHIZOPHRENIA
     Dosage: 300 MG, UNK

REACTIONS (4)
  - White blood cell count increased [Recovered/Resolved]
  - Agranulocytosis [Recovered/Resolved]
  - Constipation [Unknown]
  - Dry mouth [Unknown]
